FAERS Safety Report 6355130-4 (Version None)
Quarter: 2009Q3

REPORT INFORMATION
  Report Type: 
  Country: None (occurrence: None)
  Receive Date: 20090914
  Receipt Date: 20090902
  Transmission Date: 20100115
  Serious: Yes (Hospitalization)
  Sender: FDA-Public Use
  Company Number: DE-ELI_LILLY_AND_COMPANY-DE200906002862

PATIENT
  Sex: Female
  Weight: 66 kg

DRUGS (9)
  1. SOMATROPIN [Suspect]
     Indication: GROWTH HORMONE DEFICIENCY
     Dosage: 0.4 MG, DAILY (1/D)
     Dates: start: 20080519
  2. EUTHYROX [Concomitant]
  3. HYDROCORTISONE [Concomitant]
  4. TOPAMAX [Concomitant]
     Dosage: UNK, UNK
  5. TOPAMAX [Concomitant]
     Dosage: 25 MG, UNK
     Dates: start: 20090614
  6. CYCLO-PROGYNOVA [Concomitant]
  7. MINRIN [Concomitant]
     Route: 045
  8. SEREVENT [Concomitant]
  9. FLUTIDE [Concomitant]

REACTIONS (2)
  - CEREBRAL CYST [None]
  - EPILEPSY [None]
